FAERS Safety Report 7570836-7 (Version None)
Quarter: 2011Q2

REPORT INFORMATION
  Report Type: 
  Country: None (occurrence: None)
  Receive Date: 20110624
  Receipt Date: 20110616
  Transmission Date: 20111010
  Serious: No
  Sender: FDA-Public Use
  Company Number: US-ALLERGAN-1107460US

PATIENT
  Age: 39 Year
  Sex: Female

DRUGS (2)
  1. LATISSE [Suspect]
     Indication: GROWTH OF EYELASHES
     Dosage: 1 GTT, QHS
     Dates: start: 20101001, end: 20110401
  2. VISINE EYE DROPS [Concomitant]

REACTIONS (3)
  - SCLERAL PIGMENTATION [None]
  - EYE PRURITUS [None]
  - EYE IRRITATION [None]
